FAERS Safety Report 5534604-X (Version None)
Quarter: 2007Q4

REPORT INFORMATION
  Report Type: 
  Country: None (occurrence: None)
  Receive Date: 20071204
  Receipt Date: 20071204
  Transmission Date: 20080405
  Serious: Yes (Other)
  Sender: FDA-Public Use
  Company Number: None

PATIENT
  Age: 5 Year
  Sex: Female
  Weight: 27.8509 kg

DRUGS (2)
  1. AMOXICILLIN TRIHYDRATE [Suspect]
     Indication: PNEUMONIA
     Dosage: 1.5 TSP PO
     Route: 048
     Dates: start: 20070929, end: 20070929
  2. ROBITUSSIN DM [Concomitant]

REACTIONS (1)
  - RASH [None]
